FAERS Safety Report 4714336-8 (Version None)
Quarter: 2005Q3

REPORT INFORMATION
  Report Type: 
  Country: None (occurrence: None)
  Receive Date: 20050714
  Receipt Date: 20050706
  Transmission Date: 20060218
  Serious: Yes (Hospitalization)
  Sender: FDA-Public Use
  Company Number: 200511795EU

PATIENT
  Age: 68 Year
  Sex: Female

DRUGS (13)
  1. ENOXAPARIN SODIUM [Suspect]
     Indication: DEEP VEIN THROMBOSIS
     Route: 058
     Dates: start: 20050517, end: 20050523
  2. WARFARIN [Suspect]
     Indication: DEEP VEIN THROMBOSIS
     Route: 048
     Dates: start: 20050517, end: 20050529
  3. ASPIRIN [Concomitant]
     Dates: start: 20050511, end: 20050519
  4. SIMVASTATIN [Concomitant]
     Dates: start: 20020712
  5. ATENOLOL [Concomitant]
     Dates: start: 20020614
  6. OMEPRAZOLE [Concomitant]
     Dates: start: 20010412
  7. CODEINE PHOSPHATE [Concomitant]
     Dates: start: 20050528, end: 20050628
  8. ZOPICLONE [Concomitant]
     Route: 048
     Dates: start: 20050528
  9. AUGMENTIN '125' [Concomitant]
     Dates: start: 20050526, end: 20050528
  10. ACETAMINOPHEN [Concomitant]
     Dates: start: 20050515
  11. TRAMADOL HCL [Concomitant]
     Dates: start: 20050515, end: 20050519
  12. CLOTRIMAZOLE [Concomitant]
     Dates: start: 20050525, end: 20050526
  13. FERROGRADUMET [Concomitant]
     Dates: start: 20050526, end: 20050618

REACTIONS (2)
  - ASPIRATION JOINT [None]
  - JOINT SWELLING [None]
